FAERS Safety Report 6119564-5 (Version None)
Quarter: 2009Q1

REPORT INFORMATION
  Report Type: 
  Country: None (occurrence: None)
  Receive Date: 20090316
  Receipt Date: 20090313
  Transmission Date: 20090719
  Serious: Yes (Hospitalization)
  Sender: FDA-Public Use
  Company Number: B0564104A

PATIENT
  Age: 51 Year
  Sex: Female

DRUGS (1)
  1. AUGMENTIN '125' [Suspect]
     Indication: PROPHYLAXIS
     Route: 048
     Dates: start: 20080701, end: 20080701

REACTIONS (4)
  - ASTHENIA [None]
  - PRURITUS [None]
  - RASH [None]
  - URTICARIA [None]
